FAERS Safety Report 6309078-1 (Version None)
Quarter: 2009Q3

REPORT INFORMATION
  Report Type: 
  Country: None (occurrence: None)
  Receive Date: 20090814
  Receipt Date: 20090810
  Transmission Date: 20100115
  Serious: Yes (Hospitalization, Other)
  Sender: FDA-Public Use
  Company Number: DE-BAYER-200911816GPV

PATIENT
  Age: 9 Year
  Sex: Male
  Weight: 44 kg

DRUGS (12)
  1. KOGENATE [Suspect]
     Indication: FACTOR VIII DEFICIENCY
     Dosage: 25 TIMES
     Route: 065
     Dates: end: 20090623
  2. KOGENATE [Suspect]
     Dosage: 8 TIMES
     Route: 065
     Dates: end: 20090623
  3. KOGENATE [Suspect]
     Dosage: 3 TIMES
     Route: 065
     Dates: end: 20090623
  4. KOGENATE [Suspect]
     Dosage: 3 TIMES
     Route: 065
     Dates: end: 20090623
  5. KOGENATE [Suspect]
     Dosage: 7 TIMES
     Route: 065
     Dates: end: 20090623
  6. KOGENATE [Suspect]
     Dosage: 2 TIMES
     Route: 065
     Dates: end: 20090623
  7. KOGENATE [Suspect]
     Route: 065
     Dates: end: 20090623
  8. KOGENATE [Suspect]
     Dosage: 7 TIMES
     Route: 065
     Dates: end: 20090623
  9. KOGENATE [Suspect]
     Dosage: 8 TIMES
     Route: 065
     Dates: end: 20090623
  10. KOGENATE [Suspect]
     Dosage: 18 TIMES
     Route: 065
     Dates: end: 20090623
  11. ADVATE [Suspect]
     Indication: FACTOR VIII DEFICIENCY
     Route: 065
     Dates: start: 20090101
  12. ZITHROMAX [Concomitant]
     Indication: DRUG USE FOR UNKNOWN INDICATION
     Route: 065
     Dates: start: 20090101

REACTIONS (5)
  - FACTOR VIII INHIBITION [None]
  - HAEMARTHROSIS [None]
  - HAEMATURIA [None]
  - HAEMORRHAGIC DIATHESIS [None]
  - INJECTION SITE URTICARIA [None]
